FAERS Safety Report 19029150 (Version 7)
Quarter: 2025Q2

REPORT INFORMATION
  Report Type: Report from Study
  Country: JP (occurrence: JP)
  Receive Date: 20210318
  Receipt Date: 20250527
  Transmission Date: 20250717
  Serious: Yes (Death, Hospitalization, Other)
  Sender: BAUSCH AND LOMB
  Company Number: JP-BAUSCH-BL-2021-007979

PATIENT
  Age: 34 Year
  Sex: Male
  Weight: 70.9 kg

DRUGS (34)
  1. DEMSER [Suspect]
     Active Substance: METYROSINE
     Indication: Blood catecholamines increased
     Dosage: (250 MG/IN THE MORNING AND EVENING)
     Route: 048
     Dates: start: 20191010, end: 20191012
  2. DEMSER [Suspect]
     Active Substance: METYROSINE
     Dosage: (250 MG/IN THE MORNING, AFTERNOON AND EVENING)
     Route: 048
     Dates: start: 20191013, end: 20191118
  3. DEMSER [Suspect]
     Active Substance: METYROSINE
     Dosage: (250 MG/IN THE MORNING, AFTERNOON, EVENING AND BEFORE BED TIME)
     Route: 048
     Dates: start: 20191119, end: 20191224
  4. DEMSER [Suspect]
     Active Substance: METYROSINE
     Route: 048
     Dates: start: 20191225, end: 20200106
  5. DEMSER [Suspect]
     Active Substance: METYROSINE
     Route: 048
     Dates: start: 20200107, end: 20200303
  6. DEMSER [Suspect]
     Active Substance: METYROSINE
     Dosage: (250 MG/IN THE MORNING, AFTERNOON, EVENING AND BEFORE BED TIME)
     Route: 048
     Dates: start: 20200304, end: 20200322
  7. EMEND [Suspect]
     Active Substance: APREPITANT
     Indication: Prophylaxis of nausea and vomiting
     Route: 048
     Dates: start: 20191211, end: 20191212
  8. DOXAZOSIN [Concomitant]
     Active Substance: DOXAZOSIN MESYLATE
     Indication: Product used for unknown indication
     Dates: start: 20191010, end: 20200322
  9. TELMISARTAN [Concomitant]
     Active Substance: TELMISARTAN
     Indication: Product used for unknown indication
     Dates: start: 20191010, end: 20200322
  10. TENELIGLIPTIN [Concomitant]
     Active Substance: TENELIGLIPTIN
     Indication: Product used for unknown indication
     Dates: start: 20191010, end: 20200322
  11. TRESIBA [Concomitant]
     Active Substance: INSULIN DEGLUDEC
     Indication: Product used for unknown indication
     Dates: start: 20191010, end: 20200322
  12. LANSOPRAZOLE [Concomitant]
     Active Substance: LANSOPRAZOLE
     Indication: Product used for unknown indication
     Dates: start: 20191029, end: 20200322
  13. SODIUM PICOSULFATE [Concomitant]
     Active Substance: SODIUM PICOSULFATE
     Indication: Product used for unknown indication
     Dates: start: 20191118, end: 20200322
  14. VONOPRAZAN FUMARATE [Concomitant]
     Active Substance: VONOPRAZAN FUMARATE
     Indication: Product used for unknown indication
     Dates: start: 20191127, end: 20200322
  15. TRAZODONE HYDROCHLORIDE [Concomitant]
     Active Substance: TRAZODONE HYDROCHLORIDE
     Indication: Product used for unknown indication
     Route: 065
     Dates: start: 20200220, end: 20200322
  16. BELSOMRA [Concomitant]
     Active Substance: SUVOREXANT
     Indication: Product used for unknown indication
     Route: 065
     Dates: start: 20200220, end: 20200322
  17. RISPERIDONE [Concomitant]
     Active Substance: RISPERIDONE
     Indication: Product used for unknown indication
     Route: 065
     Dates: start: 20200303, end: 20200322
  18. UREA [Concomitant]
     Active Substance: UREA
     Indication: Product used for unknown indication
     Dates: start: 20200304, end: 20200322
  19. BETAMETHASONE DIPROPIONATE [Concomitant]
     Active Substance: BETAMETHASONE DIPROPIONATE
     Indication: Product used for unknown indication
     Dates: start: 20200304, end: 20200322
  20. DEXAMETHASONE [Concomitant]
     Active Substance: DEXAMETHASONE
     Indication: Product used for unknown indication
     Dates: start: 20200305, end: 20200322
  21. CALCIUM CHLORIDE\POTASSIUM CHLORIDE\SODIUM ACETATE\SODIUM CHLORIDE [Concomitant]
     Active Substance: CALCIUM CHLORIDE\POTASSIUM CHLORIDE\SODIUM ACETATE\SODIUM CHLORIDE
     Indication: Product used for unknown indication
     Dates: start: 20191120, end: 20200322
  22. SODIUM CHLORIDE [Concomitant]
     Active Substance: SODIUM CHLORIDE
     Indication: Product used for unknown indication
     Dates: start: 20191120, end: 20200322
  23. PHENTOLAMINE MESYLATE [Concomitant]
     Active Substance: PHENTOLAMINE MESYLATE
     Indication: Product used for unknown indication
     Dates: start: 20191127, end: 20200322
  24. ALOXI [Concomitant]
     Active Substance: PALONOSETRON HYDROCHLORIDE
     Indication: Product used for unknown indication
     Dates: start: 20191211, end: 20191212
  25. SOLDEM 3A [Concomitant]
     Active Substance: CARBOHYDRATES\POTASSIUM CHLORIDE\SODIUM CHLORIDE\SODIUM LACTATE
     Indication: Product used for unknown indication
     Dates: start: 20191211, end: 20191212
  26. ONCOVIN [Concomitant]
     Active Substance: VINCRISTINE SULFATE
     Indication: Product used for unknown indication
     Dates: start: 20191211, end: 20191211
  27. CYCLOPHOSPHAMIDE [Concomitant]
     Active Substance: CYCLOPHOSPHAMIDE
     Indication: Product used for unknown indication
     Dates: start: 20191211, end: 20191211
  28. DACARBAZINE [Concomitant]
     Active Substance: DACARBAZINE
     Indication: Product used for unknown indication
     Dates: start: 20191211, end: 20191212
  29. GASTER [Concomitant]
     Active Substance: FAMOTIDINE
     Indication: Product used for unknown indication
     Dates: start: 20200320, end: 20200320
  30. MAGNESIUM OXIDE [Concomitant]
     Active Substance: MAGNESIUM OXIDE
     Indication: Product used for unknown indication
     Dates: start: 20191010, end: 20200322
  31. BISOPROLOL FUMARATE [Concomitant]
     Active Substance: BISOPROLOL FUMARATE
     Indication: Product used for unknown indication
     Dates: start: 20191010, end: 20200322
  32. AMLODIPINE [Concomitant]
     Active Substance: AMLODIPINE BESYLATE
     Indication: Product used for unknown indication
     Dates: start: 20191010, end: 20200322
  33. LINZESS [Concomitant]
     Active Substance: LINACLOTIDE
     Indication: Product used for unknown indication
     Dates: start: 20191010, end: 20200322
  34. HUMALOG [Concomitant]
     Active Substance: INSULIN LISPRO
     Indication: Product used for unknown indication
     Dates: start: 20191010, end: 20200322

REACTIONS (11)
  - Phaeochromocytoma [Fatal]
  - Altered state of consciousness [Unknown]
  - Delirium [Not Recovered/Not Resolved]
  - Somnolence [Not Recovered/Not Resolved]
  - Pain [Not Recovered/Not Resolved]
  - Constipation [Not Recovered/Not Resolved]
  - Mouth haemorrhage [Recovered/Resolved]
  - Nasopharyngitis [Recovered/Resolved]
  - Pyrexia [Not Recovered/Not Resolved]
  - Abdominal pain upper [Recovered/Resolved]
  - Diarrhoea [Recovered/Resolved]

NARRATIVE: CASE EVENT DATE: 20191010
